FAERS Safety Report 25791668 (Version 1)
Quarter: 2025Q3

REPORT INFORMATION
  Report Type: Spontaneous
  Country: EU (occurrence: EU)
  Receive Date: 20250911
  Receipt Date: 20250911
  Transmission Date: 20251021
  Serious: Yes (Disabling)
  Sender: ARGENX BVBA
  Company Number: EU-Medison-001575

PATIENT

DRUGS (1)
  1. VYVGART [Suspect]
     Active Substance: EFGARTIGIMOD ALFA-FCAB
     Indication: Myasthenia gravis
     Route: 065
     Dates: start: 20240430, end: 20250429

REACTIONS (2)
  - Wheelchair user [Unknown]
  - Therapy cessation [Unknown]
